FAERS Safety Report 4691103-5 (Version None)
Quarter: 2005Q2

REPORT INFORMATION
  Report Type: 
  Country: None (occurrence: None)
  Receive Date: 20050610
  Receipt Date: 20050601
  Transmission Date: 20051028
  Serious: Yes (Hospitalization, Other)
  Sender: FDA-Public Use
  Company Number: 2005061508

PATIENT
  Age: 45 Year
  Sex: Male

DRUGS (1)
  1. BEXTRA [Suspect]
     Indication: PAIN
     Dosage: (40 MG, PRN), ORAL
     Route: 048
     Dates: start: 20040701, end: 20041101

REACTIONS (8)
  - ACCIDENT [None]
  - ATRIAL FIBRILLATION [None]
  - CERVICAL VERTEBRAL FRACTURE [None]
  - NEOPLASM SKIN [None]
  - PNEUMONIA [None]
  - PRURITUS [None]
  - PULMONARY EMBOLISM [None]
  - PULMONARY OEDEMA [None]
